FAERS Safety Report 4951216-7 (Version None)
Quarter: 2006Q1

REPORT INFORMATION
  Report Type: 
  Country: None (occurrence: None)
  Receive Date: 20060310
  Receipt Date: 20060228
  Transmission Date: 20060701
  Serious: Yes (Other)
  Sender: FDA-Public Use
  Company Number: 200610910BCC

PATIENT
  Sex: Female
  Weight: 45.3597 kg

DRUGS (10)
  1. ALEVE [Suspect]
     Indication: SHOULDER PAIN
     Dosage: 220 MG, QD, ORAL
     Route: 048
     Dates: end: 20060228
  2. HYZAAR [Concomitant]
  3. COZAAR [Concomitant]
  4. NORVASC [Concomitant]
  5. PLAVIX [Concomitant]
  6. DIGITEK [Concomitant]
  7. SYNTHROID [Concomitant]
  8. IMURAN [Concomitant]
  9. QUINIDINE GLUCONATE [Concomitant]
  10. ASPIRIN [Concomitant]

REACTIONS (1)
  - BLOOD PRESSURE INCREASED [None]
